FAERS Safety Report 16194687 (Version 1)
Quarter: 2019Q2

REPORT INFORMATION
  Report Type: Spontaneous
  Country: US (occurrence: US)
  Receive Date: 20190414
  Receipt Date: 20190414
  Transmission Date: 20190711
  Serious: No
  Sender: FDA-Public Use
  Company Number: US-009507513-1903USA011519

PATIENT
  Age: 18 Year
  Sex: Female
  Weight: 71.66 kg

DRUGS (3)
  1. NEXPLANON [Suspect]
     Active Substance: ETONOGESTREL
     Indication: DYSMENORRHOEA
     Dosage: 68 MILLIGRAM
     Route: 059
     Dates: start: 201810
  2. NEXPLANON [Suspect]
     Active Substance: ETONOGESTREL
     Indication: CONTRACEPTION
  3. WELLBUTRIN [Concomitant]
     Active Substance: BUPROPION HYDROCHLORIDE

REACTIONS (6)
  - Polymenorrhoea [Not Recovered/Not Resolved]
  - Limb injury [Unknown]
  - Implant site pain [Recovered/Resolved]
  - Hypomenorrhoea [Recovered/Resolved]
  - Product use in unapproved indication [Unknown]
  - Dysmenorrhoea [Not Recovered/Not Resolved]

NARRATIVE: CASE EVENT DATE: 2018
